FAERS Safety Report 13696283 (Version 3)
Quarter: 2018Q4

REPORT INFORMATION
  Report Type: Spontaneous
  Country: US (occurrence: US)
  Receive Date: 20170628
  Receipt Date: 20181226
  Transmission Date: 20190204
  Serious: No
  Sender: FDA-Public Use
  Company Number: US-ELI_LILLY_AND_COMPANY-US201706011323

PATIENT
  Age: 62 Year
  Sex: Female

DRUGS (2)
  1. METOPROLOL. [Concomitant]
     Active Substance: METOPROLOL
     Indication: ARRHYTHMIA
     Dosage: UNK
  2. FORTEO [Suspect]
     Active Substance: TERIPARATIDE
     Indication: OSTEOPOROSIS
     Dosage: 20 UG, UNKNOWN
     Route: 058
     Dates: start: 20170417

REACTIONS (11)
  - Nervousness [Unknown]
  - Diarrhoea [Unknown]
  - Muscle spasms [Recovered/Resolved]
  - Abdominal rigidity [Unknown]
  - Muscle spasms [Unknown]
  - Throat tightness [Unknown]
  - Injection site pain [Recovered/Resolved]
  - Flatulence [Unknown]
  - Gastrointestinal pain [Unknown]
  - Anxiety [Unknown]
  - Injection site haemorrhage [Recovered/Resolved]

NARRATIVE: CASE EVENT DATE: 20170417
